FAERS Safety Report 23646557 (Version 2)
Quarter: 2024Q2

REPORT INFORMATION
  Report Type: Report from Study
  Country: US (occurrence: US)
  Receive Date: 20240319
  Receipt Date: 20240412
  Transmission Date: 20240715
  Serious: Yes (Death, Hospitalization, Other)
  Sender: FDA-Public Use
  Company Number: US-BIOVITRUM-2024-US-002114

PATIENT
  Age: 33 Year
  Sex: Female

DRUGS (1)
  1. KINERET [Suspect]
     Active Substance: ANAKINRA
     Indication: Still^s disease
     Dosage: 100 MG DAILY
     Route: 058
     Dates: start: 20230930

REACTIONS (7)
  - Dyspnoea [Unknown]
  - Off label use [Not Recovered/Not Resolved]
  - Injection site swelling [Recovering/Resolving]
  - Injection site discolouration [Recovering/Resolving]
  - Injection site bruising [Recovering/Resolving]
  - Loss of personal independence in daily activities [Unknown]
  - Death [Fatal]

NARRATIVE: CASE EVENT DATE: 20230930
